FAERS Safety Report 9301625 (Version 1)
Quarter: 2013Q2

REPORT INFORMATION
  Report Type: Spontaneous
  Country: US (occurrence: None)
  Receive Date: 20130520
  Receipt Date: 20130520
  Transmission Date: 20140414
  Serious: Yes (Other)
  Sender: FDA-Public Use
  Company Number: None

PATIENT
  Age: 59 Year
  Sex: Female

DRUGS (1)
  1. FENTANYL [Suspect]
     Indication: PAIN MANAGEMENT
     Dosage: 100MCG/HR, EVERY 3 DAYS, TRANSDERMAL
     Route: 062
     Dates: start: 20130222, end: 20130321

REACTIONS (3)
  - Product adhesion issue [None]
  - Rash [None]
  - Thermal burn [None]
